FAERS Safety Report 7552361-2 (Version None)
Quarter: 2011Q2

REPORT INFORMATION
  Report Type: 
  Country: None (occurrence: None)
  Receive Date: 20110616
  Receipt Date: 20080630
  Transmission Date: 20111010
  Serious: Yes (Other)
  Sender: FDA-Public Use
  Company Number: PHHY2008SI12690

PATIENT
  Sex: Male

DRUGS (4)
  1. DIOVAN HCT [Suspect]
     Indication: HYPERTENSION
     Dosage: 160/12.5 MG/DAILY
     Route: 048
  2. VITAMIN B COMPLEX CAP [Concomitant]
  3. ADALAT [Concomitant]
     Dosage: 30 MG
  4. ASPIRIN [Concomitant]
     Dosage: 100 MG/DAILY

REACTIONS (1)
  - CEREBRAL HAEMORRHAGE [None]
